FAERS Safety Report 6408872-6 (Version None)
Quarter: 2009Q4

REPORT INFORMATION
  Report Type: 
  Country: None (occurrence: None)
  Receive Date: 20091021
  Receipt Date: 20091009
  Transmission Date: 20100525
  Serious: Yes (Hospitalization)
  Sender: FDA-Public Use
  Company Number: JP-JNJFOC-20091003762

PATIENT
  Sex: Female

DRUGS (24)
  1. REMICADE [Suspect]
     Dosage: 2ND INFUSION
     Route: 042
     Dates: end: 20090611
  2. REMICADE [Suspect]
     Indication: RHEUMATOID ARTHRITIS
     Route: 042
     Dates: end: 20090611
  3. RHEUMATREX [Suspect]
     Indication: RHEUMATOID ARTHRITIS
     Route: 048
  4. PREDNISOLONE [Suspect]
     Indication: RHEUMATOID ARTHRITIS
     Route: 048
  5. COLCHICINE [Suspect]
     Indication: DRUG USE FOR UNKNOWN INDICATION
     Route: 048
  6. PARIET [Suspect]
     Indication: DRUG USE FOR UNKNOWN INDICATION
     Route: 048
  7. THYRADIN S [Concomitant]
     Indication: VARICOSE VEIN
     Dosage: 50 RG
     Route: 048
  8. CEPHADOL [Concomitant]
     Route: 048
  9. CEFTRIAXONE SODIUM [Concomitant]
  10. METHYCOBAL [Concomitant]
     Route: 048
  11. LASIX [Concomitant]
     Indication: OEDEMA
  12. ISCOTIN [Concomitant]
     Indication: PROPHYLAXIS
     Route: 048
  13. LOXONIN [Concomitant]
     Route: 048
  14. FOLIAMIN [Concomitant]
     Route: 048
  15. CATLEP [Concomitant]
     Route: 047
  16. OLMETEC [Concomitant]
     Route: 048
  17. FERROMIA [Concomitant]
     Route: 048
  18. ASPARA CA [Concomitant]
     Route: 048
  19. ALFAROL [Concomitant]
     Dosage: 0.5 RG
     Route: 048
  20. PYDOXAL [Concomitant]
     Route: 048
  21. NSAID [Concomitant]
  22. MUCOSTA [Concomitant]
     Route: 048
  23. AMINOSALICYLATE CALCIUM [Concomitant]
     Indication: PULMONARY TUBERCULOSIS
     Route: 048
  24. STREPTOMYCIN SULFATE [Concomitant]
     Indication: PULMONARY TUBERCULOSIS
     Route: 030

REACTIONS (5)
  - HEPATIC FUNCTION ABNORMAL [None]
  - PNEUMOCYSTIS JIROVECI PNEUMONIA [None]
  - REFLUX OESOPHAGITIS [None]
  - RENAL IMPAIRMENT [None]
  - THROMBOCYTOPENIA [None]
